FAERS Safety Report 21000457 (Version 1)
Quarter: 2022Q2

REPORT INFORMATION
  Report Type: Report from Study
  Country: FR (occurrence: FR)
  Receive Date: 20220623
  Receipt Date: 20220623
  Transmission Date: 20220721
  Serious: Yes (Other)
  Sender: FDA-Public Use
  Company Number: FR-JNJFOC-20200518908

PATIENT
  Age: 5 Year
  Sex: Male
  Weight: 16 kg

DRUGS (25)
  1. DARATUMUMAB [Suspect]
     Active Substance: DARATUMUMAB
     Indication: Acute lymphocytic leukaemia
     Dates: start: 20200424
  2. VINCRISTINE [Suspect]
     Active Substance: VINCRISTINE
     Indication: Product used for unknown indication
     Dates: start: 20200425
  3. PREDNISONE [Suspect]
     Active Substance: PREDNISONE
     Indication: Product used for unknown indication
     Route: 048
     Dates: start: 20200425
  4. DOXORUBICIN [Suspect]
     Active Substance: DOXORUBICIN
     Indication: Product used for unknown indication
     Dates: start: 20200425
  5. PEG/L-ASPARAGINASE [Suspect]
     Active Substance: PEGASPARGASE
     Indication: Product used for unknown indication
     Dates: start: 20200425
  6. METHOTREXATE [Concomitant]
     Active Substance: METHOTREXATE
     Indication: Product used for unknown indication
     Route: 037
     Dates: start: 20200423
  7. CYCLOPHOSPHAMIDE [Concomitant]
     Active Substance: CYCLOPHOSPHAMIDE
     Indication: Product used for unknown indication
  8. CYTARABINE [Concomitant]
     Active Substance: CYTARABINE
     Indication: Product used for unknown indication
  9. MERCAPTOPURINE [Concomitant]
     Active Substance: MERCAPTOPURINE
     Indication: Product used for unknown indication
  10. MESNA [Concomitant]
     Active Substance: MESNA
     Indication: Product used for unknown indication
  11. ASPARAGINASE ERWINIA CHRYSANTHEMI [Concomitant]
     Active Substance: ASPARAGINASE ERWINIA CHRYSANTHEMI
     Indication: Product used for unknown indication
  12. ONDASETRON                         /00955301/ [Concomitant]
     Indication: Vomiting
     Dates: start: 20200424
  13. METOPIMAZINE [Concomitant]
     Active Substance: METOPIMAZINE
     Indication: Prophylaxis
     Dates: start: 20200424
  14. PIPERACILLIN SODIUM\TAZOBACTAM SODIUM [Concomitant]
     Active Substance: PIPERACILLIN SODIUM\TAZOBACTAM SODIUM
     Indication: Infection prophylaxis
     Dates: start: 20200421, end: 202005
  15. ACYCLOVIR [Concomitant]
     Active Substance: ACYCLOVIR
     Indication: Prophylaxis
     Route: 048
     Dates: start: 2020
  16. MYCAMINE [Concomitant]
     Active Substance: MICAFUNGIN SODIUM
     Indication: Infection prophylaxis
     Dosage: END DATE 29-APR-2020
     Dates: start: 20200421
  17. ALBUMIN HUMAN [Concomitant]
     Active Substance: ALBUMIN HUMAN
     Indication: Oedema
     Dosage: END DATE 27-APR-2020
     Dates: start: 20200425
  18. ALBUMIN HUMAN [Concomitant]
     Active Substance: ALBUMIN HUMAN
     Dosage: 10-MAY-2020 END DATE
     Dates: start: 20200510
  19. AMPHOTERICIN B [Concomitant]
     Active Substance: AMPHOTERICIN B
     Indication: Mucormycosis
     Dosage: END DATE 12-MAY-2020
     Dates: start: 20200429
  20. AMPHOTERICIN B [Concomitant]
     Active Substance: AMPHOTERICIN B
     Dates: start: 20200513
  21. GRANULOCYTE COLONY-STIMULATING FACTOR NOS [Concomitant]
     Active Substance: GRANULOCYTE COLONY-STIMULATING FACTOR NOS
     Indication: Mucormycosis
     Dosage: DOSE: 90 OTHER
     Dates: start: 20200504
  22. LANSOPRAZOLE [Concomitant]
     Active Substance: LANSOPRAZOLE
     Indication: Prophylaxis
     Route: 048
     Dates: start: 20200429
  23. BACTRIM [Concomitant]
     Active Substance: SULFAMETHOXAZOLE\TRIMETHOPRIM
     Indication: Prophylaxis
     Route: 048
     Dates: start: 20200427
  24. VANCOMYCIN [Concomitant]
     Active Substance: VANCOMYCIN
     Indication: Pyrexia
     Dates: start: 20200508
  25. MORPHINE [Concomitant]
     Active Substance: MORPHINE
     Indication: Mucosal inflammation
     Dates: start: 20200505

REACTIONS (1)
  - Pseudomonas infection [Recovered/Resolved]

NARRATIVE: CASE EVENT DATE: 20200513
